FAERS Safety Report 4583951-7 (Version None)
Quarter: 2005Q1

REPORT INFORMATION
  Report Type: 
  Country: None (occurrence: None)
  Receive Date: 20050125
  Receipt Date: 20041101
  Transmission Date: 20050727
  Serious: No
  Sender: FDA-Public Use
  Company Number: USA041081938

PATIENT
  Age: 78 Year
  Sex: Female
  Weight: 70 kg

DRUGS (2)
  1. FORTEO [Suspect]
     Indication: OSTEOPOROSIS
     Dosage: 20 UG/1 DAY
     Dates: start: 20041007
  2. EVISTA [Suspect]

REACTIONS (7)
  - ABDOMINAL PAIN UPPER [None]
  - BACK PAIN [None]
  - DIFFICULTY IN WALKING [None]
  - INFUSION SITE ERYTHEMA [None]
  - INJECTION SITE HAEMORRHAGE [None]
  - MYALGIA [None]
  - PAIN IN EXTREMITY [None]
